FAERS Safety Report 22381437 (Version 1)
Quarter: 2023Q2

REPORT INFORMATION
  Report Type: Report from Study
  Country: US (occurrence: US)
  Receive Date: 20230530
  Receipt Date: 20230530
  Transmission Date: 20230721
  Serious: Yes (Other)
  Sender: FDA-Public Use
  Company Number: US-JAZZ PHARMACEUTICALS-2023-US-010979

PATIENT
  Sex: Male

DRUGS (5)
  1. XYWAV [Suspect]
     Active Substance: CALCIUM OXYBATE\MAGNESIUM OXYBATE\POTASSIUM OXYBATE\SODIUM OXYBATE
     Indication: Narcolepsy
  2. XYWAV [Suspect]
     Active Substance: CALCIUM OXYBATE\MAGNESIUM OXYBATE\POTASSIUM OXYBATE\SODIUM OXYBATE
     Indication: Cataplexy
  3. XYWAV [Suspect]
     Active Substance: CALCIUM OXYBATE\MAGNESIUM OXYBATE\POTASSIUM OXYBATE\SODIUM OXYBATE
     Indication: Somnolence
  4. ESCITALOPRAM [Suspect]
     Active Substance: ESCITALOPRAM OXALATE
     Indication: Antidepressant therapy
  5. CLONAZEPAM [Concomitant]
     Active Substance: CLONAZEPAM
     Indication: Relaxation therapy

REACTIONS (10)
  - Disability [Unknown]
  - Nausea [Unknown]
  - Restless legs syndrome [Unknown]
  - Back pain [Unknown]
  - Pain in extremity [Unknown]
  - Depression [Unknown]
  - Ulcer [Unknown]
  - Hydrocele [Unknown]
  - Muscle spasms [Unknown]
  - Loss of personal independence in daily activities [Unknown]
